FAERS Safety Report 5730936-0 (Version None)
Quarter: 2008Q2

REPORT INFORMATION
  Report Type: 
  Country: None (occurrence: None)
  Receive Date: 20080502
  Receipt Date: 20080421
  Transmission Date: 20081010
  Serious: Yes (Hospitalization)
  Sender: FDA-Public Use
  Company Number: 08H-163-0314195-00

PATIENT
  Age: 79 Year
  Sex: Female
  Weight: 68.4932 kg

DRUGS (7)
  1. LIDOCAINE 2% W/EPINEPHRINE 1:200000 INJ [Suspect]
     Indication: LOCAL ANAESTHESIA
     Dosage: SUBCUTANEOUS
     Route: 058
     Dates: start: 20080419, end: 20080419
  2. PREVACID [Concomitant]
  3. ARICEPT [Concomitant]
  4. TEMAZEPAM [Concomitant]
  5. PLAVIX [Concomitant]
  6. METFORMIN HCL [Concomitant]
  7. PROPOFOL [Concomitant]

REACTIONS (2)
  - CHEST PAIN [None]
  - HYPERHIDROSIS [None]
